FAERS Safety Report 10192499 (Version 1)
Quarter: 2014Q2

REPORT INFORMATION
  Report Type: Spontaneous
  Country: US (occurrence: US)
  Receive Date: 20140523
  Receipt Date: 20140523
  Transmission Date: 20141212
  Serious: Yes (Other)
  Sender: FDA-Public Use
  Company Number: US-SHIRE-US201402252

PATIENT
  Age: 22 Year
  Sex: Female

DRUGS (3)
  1. 433 (CARBAMAZEPINE) [Suspect]
     Indication: CONVULSION
     Dosage: 200 MG, 4X/DAY:QID
     Route: 048
  2. 433 (CARBAMAZEPINE) [Suspect]
     Dosage: 400 MG, 3X/DAY:TID
     Route: 048
  3. ETONOGESTREL [Suspect]
     Indication: CONTRACEPTIVE IMPLANT
     Dosage: UNK, UNKNOWN
     Route: 065

REACTIONS (4)
  - Pregnancy with implant contraceptive [Recovered/Resolved]
  - Convulsion [Recovered/Resolved]
  - Exposure during pregnancy [Recovered/Resolved]
  - Inappropriate schedule of drug administration [Unknown]
